FAERS Safety Report 6413043-3 (Version None)
Quarter: 2009Q4

REPORT INFORMATION
  Report Type: 
  Country: None (occurrence: None)
  Receive Date: 20091023
  Receipt Date: 20091023
  Transmission Date: 20100525
  Serious: Yes (Life-Threatening, Hospitalization)
  Sender: FDA-Public Use
  Company Number: None

PATIENT
  Age: 43 Year
  Sex: Female
  Weight: 127.0072 kg

DRUGS (2)
  1. YAZ [Suspect]
     Indication: MENSTRUAL CYCLE MANAGEMENT
     Dosage: 1 TABLET 1 X DAILY ORAL
     Route: 048
     Dates: start: 20080601, end: 20090101
  2. YAZ [Suspect]
     Indication: ORAL CONTRACEPTION
     Dosage: 1 TABLET 1 X DAILY ORAL
     Route: 048
     Dates: start: 20080601, end: 20090101

REACTIONS (2)
  - PAIN IN EXTREMITY [None]
  - PULMONARY THROMBOSIS [None]
